FAERS Safety Report 4539183-1 (Version None)
Quarter: 2004Q4

REPORT INFORMATION
  Report Type: 
  Country: None (occurrence: None)
  Receive Date: 20041227
  Receipt Date: 20041227
  Transmission Date: 20050328
  Serious: Yes (Death, Life-Threatening, Hospitalization)
  Sender: FDA-Public Use
  Company Number: None

PATIENT
  Age: 79 Year
  Sex: Female
  Weight: 77.1115 kg

DRUGS (1)
  1. CLINDAMYCIN HCL [Suspect]
     Indication: TOOTH INFECTION
     Dosage: UNTIL GONE
     Dates: start: 20041025, end: 20041029

REACTIONS (1)
  - COLITIS [None]
